FAERS Safety Report 21183507 (Version 1)
Quarter: 2022Q3

REPORT INFORMATION
  Report Type: Spontaneous
  Country: US (occurrence: US)
  Receive Date: 20220808
  Receipt Date: 20220808
  Transmission Date: 20221027
  Serious: No
  Sender: FDA-Public Use
  Company Number: US-ORGANON-O2207USA002130

PATIENT
  Sex: Female

DRUGS (2)
  1. ASMANEX [Suspect]
     Active Substance: MOMETASONE FUROATE
     Indication: Asthma
     Dosage: UNK, QD OF 30 METERED DOSE
     Dates: start: 202205, end: 2022
  2. ASMANEX [Suspect]
     Active Substance: MOMETASONE FUROATE
     Indication: Asthma
     Dosage: UNK, QD OF 30 METERED DOSE
     Dates: start: 202206

REACTIONS (6)
  - Dyspnoea [Unknown]
  - Device difficult to use [Unknown]
  - Device malfunction [Unknown]
  - Poor quality device used [Unknown]
  - Dyspnoea [Recovered/Resolved]
  - Device difficult to use [Unknown]

NARRATIVE: CASE EVENT DATE: 20220501
